FAERS Safety Report 6870787-7 (Version None)
Quarter: 2010Q3

REPORT INFORMATION
  Report Type: 
  Country: None (occurrence: None)
  Receive Date: 20100721
  Receipt Date: 20100707
  Transmission Date: 20110219
  Serious: Yes (Hospitalization)
  Sender: FDA-Public Use
  Company Number: IPC201007-000184

PATIENT
  Age: 16 Year
  Sex: Female

DRUGS (2)
  1. METFORMIN HCL [Suspect]
     Dosage: 22 GM
  2. SIMVASTATIN [Suspect]
     Dosage: 200 MG

REACTIONS (4)
  - DIABETES INSIPIDUS [None]
  - PANCREATITIS [None]
  - RENAL FAILURE [None]
  - VOMITING [None]
